FAERS Safety Report 7102989-9 (Version None)
Quarter: 2010Q4

REPORT INFORMATION
  Report Type: 
  Country: None (occurrence: None)
  Receive Date: 20101115
  Receipt Date: 20080325
  Transmission Date: 20110411
  Serious: No
  Sender: FDA-Public Use
  Company Number: US-KINGPHARMUSA00001-K200601174

PATIENT
  Sex: Male
  Weight: 76.19 kg

DRUGS (5)
  1. ALTACE [Suspect]
     Indication: HYPERTENSION
     Dosage: 5 MG, UNK
     Route: 048
     Dates: end: 20060828
  2. ALTACE [Suspect]
     Dosage: 5 MG, TID
     Route: 048
     Dates: end: 20060828
  3. ALTACE [Suspect]
     Dosage: 20 MG, BID
     Route: 048
     Dates: start: 20040101
  4. M.V.I. [Concomitant]
     Dosage: UNK, QD
     Route: 048
  5. AGGRENOX [Concomitant]
     Dosage: UNK, QD
     Route: 048

REACTIONS (1)
  - COUGH [None]
